FAERS Safety Report 6254921-8 (Version None)
Quarter: 2009Q3

REPORT INFORMATION
  Report Type: 
  Country: None (occurrence: None)
  Receive Date: 20090702
  Receipt Date: 20080519
  Transmission Date: 20100115
  Serious: No
  Sender: FDA-Public Use
  Company Number: A0728827A

PATIENT
  Age: 57 Year
  Sex: Female

DRUGS (6)
  1. PARNATE [Suspect]
     Indication: DEPRESSION
     Dosage: 60MG TWICE PER DAY
     Route: 048
     Dates: start: 20050101
  2. LOTENSIN [Concomitant]
  3. REMERON [Concomitant]
  4. LITHIUM [Concomitant]
  5. LEVOXYL [Concomitant]
  6. SEROQUEL [Concomitant]

REACTIONS (2)
  - DRUG INEFFECTIVE [None]
  - TREMOR [None]
